FAERS Safety Report 16266826 (Version 6)
Quarter: 2020Q3

REPORT INFORMATION
  Report Type: Report from Study
  Country: US (occurrence: US)
  Receive Date: 20190502
  Receipt Date: 20200812
  Transmission Date: 20201102
  Serious: Yes (Hospitalization)
  Sender: FDA-Public Use
  Company Number: US-EISAI MEDICAL RESEARCH-EC-2019-055868

PATIENT
  Age: 56 Year
  Sex: Female
  Weight: 95.5 kg

DRUGS (28)
  1. MIRTAZAPINE. [Concomitant]
     Active Substance: MIRTAZAPINE
  2. MUCINEX DM [Concomitant]
     Active Substance: DEXTROMETHORPHAN HYDROBROMIDE\GUAIFENESIN
  3. LORAZEPAM. [Concomitant]
     Active Substance: LORAZEPAM
  4. METOCLOPRAMIDE. [Concomitant]
     Active Substance: METOCLOPRAMIDE
  5. MAGIC MOUTHWASH [Concomitant]
     Active Substance: DIPHENHYDRAMINE HYDROCHLORIDE\LIDOCAINE HYDROCHLORIDE\NYSTATIN
  6. LENVATINIB [Suspect]
     Active Substance: LENVATINIB
     Route: 048
     Dates: start: 20190321, end: 20191117
  7. TRAMADOL. [Concomitant]
     Active Substance: TRAMADOL
  8. FLONASE [Concomitant]
     Active Substance: FLUTICASONE PROPIONATE
  9. LENVATINIB [Suspect]
     Active Substance: LENVATINIB
     Indication: NEOPLASM
     Route: 048
     Dates: start: 20181220, end: 20190320
  10. PEMBROLIZUMAB. [Suspect]
     Active Substance: PEMBROLIZUMAB
     Indication: NEOPLASM
     Route: 041
     Dates: start: 20181220, end: 20191115
  11. LUBIPROSTONE [Concomitant]
     Active Substance: LUBIPROSTONE
  12. PANTOPRAZOLE [Concomitant]
     Active Substance: PANTOPRAZOLE
  13. TRAZODONE [Concomitant]
     Active Substance: TRAZODONE HYDROCHLORIDE
  14. SALIVAMAX [Concomitant]
  15. CLINDAMYCIN. [Concomitant]
     Active Substance: CLINDAMYCIN
  16. DAPTOMYCIN. [Concomitant]
     Active Substance: DAPTOMYCIN
  17. FUROSEMIDE. [Concomitant]
     Active Substance: FUROSEMIDE
  18. ONDANSETRON [Concomitant]
     Active Substance: ONDANSETRON
  19. PIPERACILLIN AND TAZOBACTAM [Concomitant]
     Active Substance: PIPERACILLIN SODIUM\TAZOBACTAM SODIUM
  20. TRIAMCINOLONE [Concomitant]
     Active Substance: TRIAMCINOLONE
  21. CITALOPRAM [Concomitant]
     Active Substance: CITALOPRAM HYDROBROMIDE
  22. LISINOPRIL. [Concomitant]
     Active Substance: LISINOPRIL
  23. ERTAPENEM. [Concomitant]
     Active Substance: ERTAPENEM SODIUM
  24. METHOCARBAMOL. [Concomitant]
     Active Substance: METHOCARBAMOL
  25. HYDROXYZINE [Concomitant]
     Active Substance: HYDROXYZINE HYDROCHLORIDE
  26. CLONIDINE. [Concomitant]
     Active Substance: CLONIDINE
  27. LEVOTHYROXINE. [Concomitant]
     Active Substance: LEVOTHYROXINE
  28. FLAGYL [Concomitant]
     Active Substance: METRONIDAZOLE\METRONIDAZOLE HYDROCHLORIDE

REACTIONS (5)
  - Pyrexia [Recovered/Resolved]
  - Cholecystitis [Recovered/Resolved]
  - Diverticulitis [Recovered/Resolved]
  - Adrenal insufficiency [Not Recovered/Not Resolved]
  - Cough [Recovered/Resolved]

NARRATIVE: CASE EVENT DATE: 20190429
